FAERS Safety Report 11873193 (Version 1)
Quarter: 2015Q4

REPORT INFORMATION
  Report Type: Spontaneous
  Country: IT (occurrence: IT)
  Receive Date: 20151228
  Receipt Date: 20151228
  Transmission Date: 20160305
  Serious: Yes (Other)
  Sender: FDA-Public Use
  Company Number: IT-JNJFOC-20151212730

PATIENT
  Age: 50 Year

DRUGS (1)
  1. REMICADE [Suspect]
     Active Substance: INFLIXIMAB
     Indication: PSORIASIS
     Dosage: FOR 5 YEARS
     Route: 042

REACTIONS (2)
  - Paradoxical drug reaction [Unknown]
  - Acanthoma [Unknown]
